FAERS Safety Report 6582619-5 (Version None)
Quarter: 2010Q1

REPORT INFORMATION
  Report Type: 
  Country: None (occurrence: None)
  Receive Date: 20100203
  Receipt Date: 20100106
  Transmission Date: 20100710
  Serious: Yes (Death)
  Sender: FDA-Public Use
  Company Number: 20108052

PATIENT
  Sex: Female

DRUGS (1)
  1. LIORESAL [Suspect]
     Indication: MUSCLE SPASTICITY
     Dosage: 288.9 MCG, DAILY, INTRATHECAL
     Route: 037

REACTIONS (5)
  - DISEASE COMPLICATION [None]
  - LUNG DISORDER [None]
  - MEDICAL DEVICE COMPLICATION [None]
  - RESPIRATORY DISORDER [None]
  - SOMNOLENCE [None]
